FAERS Safety Report 7525805-X (Version None)
Quarter: 2011Q2

REPORT INFORMATION
  Report Type: 
  Country: None (occurrence: None)
  Receive Date: 20110526
  Receipt Date: 20110517
  Transmission Date: 20111010
  Serious: Yes (Other)
  Sender: FDA-Public Use
  Company Number: VAL_00571_2011

PATIENT
  Age: 60 Year
  Sex: Female

DRUGS (2)
  1. ROCALTROL [Suspect]
     Indication: BACK PAIN
     Dosage: 0.25 UG, QD, ORAL
     Route: 048
     Dates: start: 20090101
  2. ROCALTROL [Suspect]
     Indication: OSTEOPOROSIS
     Dosage: 0.25 UG, QD, ORAL
     Route: 048
     Dates: start: 20090101

REACTIONS (2)
  - PRODUCT QUALITY ISSUE [None]
  - DRUG EFFECT DECREASED [None]
